FAERS Safety Report 5722415-1 (Version None)
Quarter: 2008Q2

REPORT INFORMATION
  Report Type: 
  Country: None (occurrence: None)
  Receive Date: 20080429
  Receipt Date: 20070820
  Transmission Date: 20081010
  Serious: No
  Sender: FDA-Public Use
  Company Number: US-ASTRAZENECA-2007UW19973

PATIENT
  Age: 57 Year
  Sex: Female

DRUGS (2)
  1. NEXIUM [Suspect]
     Indication: ULCER
     Route: 048
  2. MAXZIDE [Concomitant]

REACTIONS (3)
  - CONSTIPATION [None]
  - DRUG INEFFECTIVE [None]
  - GASTROOESOPHAGEAL REFLUX DISEASE [None]
